FAERS Safety Report 12834602 (Version 1)
Quarter: 2016Q4

REPORT INFORMATION
  Report Type: Spontaneous
  Country: JP (occurrence: JP)
  Receive Date: 20161010
  Receipt Date: 20161010
  Transmission Date: 20170207
  Serious: Yes (Other)
  Sender: FDA-Public Use
  Company Number: JP-PFIZER INC-2016251898

PATIENT
  Age: 7 Decade
  Sex: Male

DRUGS (2)
  1. PRECEDEX [Suspect]
     Active Substance: DEXMEDETOMIDINE HYDROCHLORIDE
  2. SEVOFLURANE. [Suspect]
     Active Substance: SEVOFLURANE

REACTIONS (1)
  - Neuroleptic malignant syndrome [Unknown]
